FAERS Safety Report 4716293-7 (Version None)
Quarter: 2005Q3

REPORT INFORMATION
  Report Type: 
  Country: None (occurrence: None)
  Receive Date: 20050711
  Receipt Date: 20040607
  Transmission Date: 20060218
  Serious: Yes (Hospitalization, Disabling)
  Sender: FDA-Public Use
  Company Number: 356808

PATIENT
  Age: 34 Year
  Sex: Female
  Weight: 54.4 kg

DRUGS (24)
  1. CELLCEPT [Suspect]
     Indication: STEM CELL TRANSPLANT
     Dosage: 250 MG 1 PER 2 DAY ORAL
     Route: 048
     Dates: start: 20010815
  2. ALDOMET [Suspect]
     Indication: HYPERTENSION
     Dosage: ORAL
     Route: 048
     Dates: start: 20030815
  3. PANCREASE (LIPASE) [Suspect]
     Dosage: ORAL
     Route: 048
  4. PROGRAF [Concomitant]
  5. CYCLOSPORINE [Concomitant]
  6. CORTEF [Concomitant]
  7. FLORINEF [Concomitant]
  8. CALCITRIOL [Concomitant]
  9. AMILORIDE (AMILORIDE HYDROCHLORIDE) [Concomitant]
  10. CLARINEX (*DESLORATADINE/*LORATADINE/*PSEUDOEPHEDRINE HYDROCHLORIDE) [Concomitant]
  11. ORTHO TRI-CYCLEN (ETHINYL ESTRDIOL/NORGESTIMATE) [Concomitant]
  12. TOPROL-XL [Concomitant]
  13. EYE DROPS (OPHTHALMIC DRUG NOS) [Concomitant]
  14. LOTEMAX [Concomitant]
  15. TIMOLOL MALEATE [Concomitant]
  16. CRANBERRY TABLET (CRANBERRY) [Concomitant]
  17. ACIDOPHILUS (LACTOBACILLUS ACIDOPHILUS) [Concomitant]
  18. FOLIC ACID [Concomitant]
  19. MAGNESIUM SULFATE [Concomitant]
  20. PRILOSEC [Concomitant]
  21. NORVASC [Concomitant]
  22. PREMARIN [Concomitant]
  23. PROVERA [Concomitant]
  24. CALCIUM (CALCIUM NOS) [Concomitant]

REACTIONS (32)
  - ABDOMINAL DISTENSION [None]
  - ABDOMINAL PAIN [None]
  - ABDOMINAL PAIN UPPER [None]
  - ASCITES [None]
  - ASTHMA EXERCISE INDUCED [None]
  - BILE DUCT STONE [None]
  - BILIARY DILATATION [None]
  - BLOOD AMYLASE INCREASED [None]
  - BOWEL SOUNDS ABNORMAL [None]
  - CHEST PAIN [None]
  - CHILLS [None]
  - DECREASED APPETITE [None]
  - DEPRESSION [None]
  - DIARRHOEA [None]
  - DYSPNOEA [None]
  - FAECES DISCOLOURED [None]
  - FLATULENCE [None]
  - HYPERTENSION [None]
  - INSOMNIA [None]
  - INTESTINAL POLYP [None]
  - JOINT SWELLING [None]
  - LIPASE INCREASED [None]
  - MALABSORPTION [None]
  - NAUSEA [None]
  - PAIN [None]
  - PANCREATIC PSEUDOCYST [None]
  - PANCREATITIS [None]
  - PYREXIA [None]
  - SKIN HYPERPIGMENTATION [None]
  - SLEEP DISORDER [None]
  - VOMITING [None]
  - WEIGHT INCREASED [None]
